FAERS Safety Report 4390478-4 (Version None)
Quarter: 2004Q2

REPORT INFORMATION
  Report Type: 
  Country: None (occurrence: None)
  Receive Date: 20040630
  Receipt Date: 20040616
  Transmission Date: 20050107
  Serious: No
  Sender: FDA-Public Use
  Company Number: 2004UW12585

PATIENT
  Sex: Female

DRUGS (2)
  1. ARIMIDEX [Suspect]
     Indication: CARCINOMA
  2. TAMOXIFEN [Suspect]
     Indication: CARCINOMA

REACTIONS (1)
  - ENDOMETRIAL HYPERTROPHY [None]
